FAERS Safety Report 6845660-0 (Version None)
Quarter: 2010Q3

REPORT INFORMATION
  Report Type: 
  Country: None (occurrence: None)
  Receive Date: 20100715
  Receipt Date: 20070823
  Transmission Date: 20110219
  Serious: No
  Sender: FDA-Public Use
  Company Number: US-PFIZER INC-2007071400

PATIENT
  Sex: Female
  Weight: 62.7 kg

DRUGS (6)
  1. CHANTIX [Suspect]
     Indication: SMOKING CESSATION THERAPY
     Dates: start: 20070801
  2. ZOLOFT [Concomitant]
  3. BENICAR [Concomitant]
  4. NEXIUM [Concomitant]
  5. ACETYLSALICYLIC ACID [Concomitant]
  6. INTERFERON [Concomitant]
     Indication: HEPATITIS C

REACTIONS (5)
  - DECREASED APPETITE [None]
  - DEPRESSION [None]
  - HEADACHE [None]
  - NAUSEA [None]
  - VOMITING [None]
